FAERS Safety Report 16118161 (Version 1)
Quarter: 2019Q1

REPORT INFORMATION
  Report Type: Spontaneous
  Country: US (occurrence: US)
  Receive Date: 20190326
  Receipt Date: 20190326
  Transmission Date: 20190418
  Serious: No
  Sender: FDA-Public Use
  Company Number: US-TEVA-2019-US-1030962

PATIENT

DRUGS (1)
  1. LISINOPRIL. [Suspect]
     Active Substance: LISINOPRIL
     Dosage: 20-25 MG
     Route: 065

REACTIONS (3)
  - Swelling face [Unknown]
  - Lip swelling [Unknown]
  - Drug hypersensitivity [Unknown]
